FAERS Safety Report 18137010 (Version 2)
Quarter: 2020Q4

REPORT INFORMATION
  Report Type: Spontaneous
  Country: US (occurrence: US)
  Receive Date: 20200812
  Receipt Date: 20201203
  Transmission Date: 20210113
  Serious: No
  Sender: FDA-Public Use
  Company Number: US-SA-2020SA206603

PATIENT

DRUGS (1)
  1. DUPIXENT [Suspect]
     Active Substance: DUPILUMAB
     Indication: PSORIASIS
     Dosage: 300 MG, OTHER
     Route: 058
     Dates: start: 202006, end: 202011

REACTIONS (4)
  - Pruritus [Not Recovered/Not Resolved]
  - Unintentional use for unapproved indication [Not Recovered/Not Resolved]
  - Pigmentation disorder [Unknown]
  - Erythema [Not Recovered/Not Resolved]

NARRATIVE: CASE EVENT DATE: 2020
